FAERS Safety Report 15587060 (Version 1)
Quarter: 2018Q4

REPORT INFORMATION
  Report Type: Spontaneous
  Country: TH (occurrence: TH)
  Receive Date: 20181105
  Receipt Date: 20181105
  Transmission Date: 20190205
  Serious: Yes (Death, Hospitalization)
  Sender: FDA-Public Use
  Company Number: TH-ANIPHARMA-2018-TH-000004

PATIENT
  Sex: 0

DRUGS (1)
  1. PHENYTOIN SODIUM (NON-SPECIFIC) [Suspect]
     Active Substance: PHENYTOIN SODIUM
     Indication: EPILEPSY

REACTIONS (3)
  - Supraventricular tachycardia [Fatal]
  - Death [Fatal]
  - Drug reaction with eosinophilia and systemic symptoms [Fatal]
